FAERS Safety Report 6335052-5 (Version None)
Quarter: 2009Q3

REPORT INFORMATION
  Report Type: 
  Country: None (occurrence: None)
  Receive Date: 20090831
  Receipt Date: 20090821
  Transmission Date: 20100115
  Serious: Yes (Hospitalization, Other)
  Sender: FDA-Public Use
  Company Number: A0762748B

PATIENT
  Sex: Female
  Weight: 2.3 kg

DRUGS (2)
  1. ZINNAT [Suspect]
     Indication: SINUSITIS
     Dates: start: 20090104, end: 20090110
  2. FOLIC ACID [Concomitant]
     Indication: DRUG USE FOR UNKNOWN INDICATION

REACTIONS (2)
  - DRUG EXPOSURE DURING PREGNANCY [None]
  - PREMATURE BABY [None]
